FAERS Safety Report 15156977 (Version 1)
Quarter: 2018Q3

REPORT INFORMATION
  Report Type: Spontaneous
  Country: US (occurrence: US)
  Receive Date: 20180718
  Receipt Date: 20180718
  Transmission Date: 20181010
  Serious: Yes (Other)
  Sender: FDA-Public Use
  Company Number: US-ROCHE-2154150

PATIENT
  Age: 73 Year
  Sex: Male

DRUGS (1)
  1. ERIVEDGE [Suspect]
     Active Substance: VISMODEGIB
     Indication: BASAL CELL CARCINOMA
     Route: 048
     Dates: end: 20180619

REACTIONS (4)
  - Dyspepsia [Not Recovered/Not Resolved]
  - Walking disability [Not Recovered/Not Resolved]
  - Prerenal failure [Not Recovered/Not Resolved]
  - Nausea [Not Recovered/Not Resolved]
